FAERS Safety Report 6234334-5 (Version None)
Quarter: 2009Q2

REPORT INFORMATION
  Report Type: 
  Country: None (occurrence: None)
  Receive Date: 20090615
  Receipt Date: 20090508
  Transmission Date: 20091009
  Serious: No
  Sender: FDA-Public Use
  Company Number: DSA_33616_2009

PATIENT
  Sex: Male

DRUGS (17)
  1. XENAZINE [Suspect]
     Indication: HUNTINGTON'S CHOREA
     Dosage: 12.5 MG TID, 12.5 MG BID, 12.5 MG TID
     Dates: start: 20090101, end: 20090101
  2. XENAZINE [Suspect]
     Indication: HUNTINGTON'S CHOREA
     Dosage: 12.5 MG TID, 12.5 MG BID, 12.5 MG TID
     Dates: start: 20090201, end: 20090101
  3. XENAZINE [Suspect]
     Indication: HUNTINGTON'S CHOREA
     Dosage: 12.5 MG TID, 12.5 MG BID, 12.5 MG TID
     Dates: start: 20090101
  4. NADOLOL [Concomitant]
  5. ALPRAZOLAM [Concomitant]
  6. BUMEX [Concomitant]
  7. SPIRONOLACTONE [Concomitant]
  8. COUMADIN [Concomitant]
  9. NITROGLYCERIN [Concomitant]
  10. OMEPRAZOLE [Concomitant]
  11. MAGNESIUM SULFATE [Concomitant]
  12. LORTAB [Concomitant]
  13. LANTUS [Concomitant]
  14. POTASSIUM CHLORIDE [Concomitant]
  15. LIPITOR [Concomitant]
  16. LUNESTA [Concomitant]
  17. LEXAPRO [Concomitant]

REACTIONS (1)
  - DIZZINESS [None]
